FAERS Safety Report 23747166 (Version 1)
Quarter: 2024Q2

REPORT INFORMATION
  Report Type: Report from Study
  Country: DK (occurrence: DK)
  Receive Date: 20240416
  Receipt Date: 20240416
  Transmission Date: 20240715
  Serious: Yes (Hospitalization)
  Sender: FDA-Public Use
  Company Number: DK-ROCHE-3532939

PATIENT
  Age: 62 Year
  Sex: Male
  Weight: 101.1 kg

DRUGS (11)
  1. LENALIDOMIDE [Suspect]
     Active Substance: LENALIDOMIDE
     Indication: Follicular lymphoma stage IV
     Dosage: 10 MILLIGRAM EVERY 28 DAY (SUBSEQUENT DOSE ON 23-MAY-2022, 20-JUN-2022, 18-JUL-2022, 15-AUG-2022
     Route: 048
     Dates: start: 20220425, end: 20220515
  2. RITUXIMAB [Suspect]
     Active Substance: RITUXIMAB
     Indication: Follicular lymphoma stage IV
     Dosage: 10 MILLIGRAM EVERY 28 DAY (SUBSEQUENT DOSE ON 23-MAY-2022, 20-JUN-2022, 18-JUL-2022, 15-AUG-2022
     Route: 042
     Dates: start: 20220425, end: 20220516
  3. EPCORITAMAB [Suspect]
     Active Substance: EPCORITAMAB
     Indication: Follicular lymphoma stage IV
     Dosage: 0.16 MILLIGRAM (EVERY WEEK IN CYCLE 1-3, EVERY 2 WEEKS IN CYCLE 4-9, FOLLOWED BY EVERY 4 WEEKS
     Route: 058
     Dates: start: 20220425, end: 20220425
  4. EPCORITAMAB [Suspect]
     Active Substance: EPCORITAMAB
     Dosage: 0.8 MILLIGRAM, C1D1
     Route: 058
     Dates: start: 20220502, end: 20220502
  5. EPCORITAMAB [Suspect]
     Active Substance: EPCORITAMAB
     Dosage: 48 MILLIGRAM, C1D1
     Route: 058
     Dates: start: 20220509, end: 20220613
  6. TADALAFIL [Concomitant]
     Active Substance: TADALAFIL
     Dosage: UNK
     Route: 065
     Dates: start: 20231224
  7. ACETAMINOPHEN [Concomitant]
     Active Substance: ACETAMINOPHEN
     Dosage: UNK
     Route: 065
     Dates: start: 20221207
  8. ACYCLOVIR [Concomitant]
     Active Substance: ACYCLOVIR
     Dosage: UNK
     Route: 065
     Dates: start: 20220425
  9. FILGRASTIM [Concomitant]
     Active Substance: FILGRASTIM
     Dosage: UNK
     Route: 065
     Dates: start: 20230925
  10. PENICILLIN V POTASSIUM [Concomitant]
     Active Substance: PENICILLIN V POTASSIUM
     Indication: Rhinitis
     Dosage: UNK
     Route: 065
  11. SULFAMETHOXAZOLE [Concomitant]
     Active Substance: SULFAMETHOXAZOLE
     Dosage: UNK
     Route: 065
     Dates: start: 20221120

REACTIONS (2)
  - Pyrexia [Recovered/Resolved]
  - COVID-19 [Recovered/Resolved]

NARRATIVE: CASE EVENT DATE: 20240317
